FAERS Safety Report 7791900-3 (Version None)
Quarter: 2011Q4

REPORT INFORMATION
  Report Type: 
  Country: None (occurrence: None)
  Receive Date: 20111003
  Receipt Date: 20110922
  Transmission Date: 20120403
  Serious: Yes (Other)
  Sender: FDA-Public Use
  Company Number: US-ASTRAZENECA-2011SE40781

PATIENT
  Age: 72 Year
  Sex: Female
  Weight: 48.1 kg

DRUGS (9)
  1. LISINOPRIL [Suspect]
     Indication: RENAL DISORDER
     Route: 048
     Dates: start: 20080101
  2. METOPROLOL TARTRATE [Suspect]
     Indication: HEART RATE INCREASED
     Route: 048
  3. INSULIN [Concomitant]
     Indication: DIABETES MELLITUS
     Dates: start: 19730101
  4. ALPRAZOLAM [Concomitant]
     Indication: ANXIETY
     Route: 048
  5. LISINOPRIL [Suspect]
     Indication: HYPERTENSION
     Route: 048
     Dates: start: 20080101
  6. TOPROL-XL [Concomitant]
  7. OTHER MEDICATION [Concomitant]
     Indication: BLOOD PRESSURE ABNORMAL
  8. RHINOCORT [Concomitant]
  9. INSULIN [Concomitant]
     Dates: start: 19730101

REACTIONS (2)
  - HIP FRACTURE [None]
  - WRONG TECHNIQUE IN DRUG USAGE PROCESS [None]
